FAERS Safety Report 7432253-X (Version None)
Quarter: 2011Q1

REPORT INFORMATION
  Report Type: 
  Country: None (occurrence: None)
  Receive Date: 20110329
  Receipt Date: 20110311
  Transmission Date: 20110831
  Serious: No
  Sender: FDA-Public Use
  Company Number: 2128643-2011-00016

PATIENT
  Age: 51 Year
  Sex: Male

DRUGS (5)
  1. TRIAD ALCOHOL PREP PADS [Suspect]
     Indication: INJECTION
     Dosage: EVERY FOUR DAYS
  2. CINRYZE [Concomitant]
  3. FISH OIL [Concomitant]
  4. VITAMIN E [Concomitant]
  5. DANAZOL [Concomitant]

REACTIONS (2)
  - DIARRHOEA [None]
  - INFUSION SITE ERYTHEMA [None]
